FAERS Safety Report 14731704 (Version 10)
Quarter: 2018Q4

REPORT INFORMATION
  Report Type: Report from Study
  Country: CA (occurrence: CA)
  Receive Date: 20180407
  Receipt Date: 20181121
  Transmission Date: 20190204
  Serious: Yes (Other)
  Sender: FDA-Public Use
  Company Number: PHHY2015CA091372

PATIENT
  Age: 65 Year
  Sex: Male

DRUGS (7)
  1. GLICLAZIDE [Concomitant]
     Active Substance: GLICLAZIDE
     Indication: PRODUCT USED FOR UNKNOWN INDICATION
     Route: 065
  2. INSULIN [Concomitant]
     Active Substance: INSULIN NOS
     Indication: BLOOD GLUCOSE INCREASED
     Dosage: 30 IU, UNK
     Route: 065
     Dates: start: 201612
  3. SANDOSTATIN LAR DEPOT [Suspect]
     Active Substance: OCTREOTIDE ACETATE
     Indication: NEUROENDOCRINE TUMOUR
     Dosage: 30 MG, QMO (EVERY 4 WEEKS)
     Route: 030
     Dates: start: 20150629
  4. LASIX [Concomitant]
     Active Substance: FUROSEMIDE
     Indication: BLOOD PRESSURE SYSTOLIC INCREASED
     Dosage: 30 MG, UNK
     Route: 065
     Dates: start: 20170127
  5. METFORMIN [Suspect]
     Active Substance: METFORMIN HYDROCHLORIDE
     Indication: PRODUCT USED FOR UNKNOWN INDICATION
     Route: 065
  6. LASIX [Concomitant]
     Active Substance: FUROSEMIDE
     Dosage: 20 MG, UNK
     Route: 065
  7. LASIX [Concomitant]
     Active Substance: FUROSEMIDE
     Indication: BLOOD PRESSURE INCREASED
     Dosage: 30 MG, QD
     Route: 065
     Dates: start: 20170124

REACTIONS (15)
  - Body temperature decreased [Unknown]
  - Ear congestion [Unknown]
  - Middle ear effusion [Unknown]
  - Fatigue [Unknown]
  - Blood glucose increased [Recovering/Resolving]
  - Pain in extremity [Recovered/Resolved]
  - Injection site pain [Unknown]
  - Blood iron decreased [Unknown]
  - Back pain [Unknown]
  - Gout [Unknown]
  - Peripheral swelling [Recovered/Resolved]
  - Blood pressure increased [Recovering/Resolving]
  - Blood calcium increased [Unknown]
  - Malaise [Unknown]
  - Erythema [Unknown]

NARRATIVE: CASE EVENT DATE: 20150921
